FAERS Safety Report 24860252 (Version 1)
Quarter: 2025Q1

REPORT INFORMATION
  Report Type: Report from Study
  Country: US (occurrence: US)
  Receive Date: 20250120
  Receipt Date: 20250120
  Transmission Date: 20250408
  Serious: Yes (Life-Threatening)
  Sender: EXELIXIS
  Company Number: US-EXELIXIS-EXL-2025-004064

PATIENT
  Sex: Male

DRUGS (1)
  1. CABOMETYX [Suspect]
     Active Substance: CABOZANTINIB S-MALATE
     Indication: Prostate cancer
     Dosage: 40 MG, QD
     Route: 048

REACTIONS (3)
  - Liver injury [Unknown]
  - Drug ineffective [Unknown]
  - Off label use [Unknown]
